FAERS Safety Report 4870107-3 (Version None)
Quarter: 2005Q4

REPORT INFORMATION
  Report Type: 
  Country: None (occurrence: None)
  Receive Date: 20051229
  Receipt Date: 20051229
  Transmission Date: 20060501
  Serious: Yes (Life-Threatening)
  Sender: FDA-Public Use
  Company Number: None

PATIENT
  Age: 78 Year
  Sex: Female
  Weight: 56.246 kg

DRUGS (2)
  1. BONIVA [Suspect]
     Indication: OSTEOPETROSIS
     Dosage: 1 PILL  ONCE A MONTH
     Dates: start: 20051121, end: 20051121
  2. BONIVA [Suspect]
     Indication: OSTEOPETROSIS
     Dosage: 1 PILL  ONCE A MONTH
     Dates: start: 20051219, end: 20051219

REACTIONS (7)
  - ASTHENIA [None]
  - BODY TEMPERATURE INCREASED [None]
  - DIARRHOEA [None]
  - DIFFICULTY IN WALKING [None]
  - NAUSEA [None]
  - VOMITING [None]
  - WEIGHT DECREASED [None]
